FAERS Safety Report 8339690-X (Version None)
Quarter: 2012Q2

REPORT INFORMATION
  Report Type: 
  Country: None (occurrence: None)
  Receive Date: 20120507
  Receipt Date: 20120427
  Transmission Date: 20120825
  Serious: Yes (Life-Threatening, Hospitalization)
  Sender: FDA-Public Use
  Company Number: DK-UCBSA-056484

PATIENT
  Age: 72 Year
  Sex: Female
  Weight: 40 kg

DRUGS (2)
  1. METHOTREXATE [Concomitant]
     Indication: RHEUMATOID ARTHRITIS
     Dates: start: 19820111, end: 20120307
  2. CIMZIA [Suspect]
     Indication: RHEUMATOID ARTHRITIS
     Dosage: STRENGTH: 200 MG
     Route: 058
     Dates: start: 20120115, end: 20120301

REACTIONS (5)
  - COUGH [None]
  - ACUTE INTERSTITIAL PNEUMONITIS [None]
  - PYREXIA [None]
  - DYSPNOEA [None]
  - LUNG INFILTRATION [None]
